FAERS Safety Report 17823522 (Version 2)
Quarter: 2020Q2

REPORT INFORMATION
  Report Type: Spontaneous
  Country: US (occurrence: US)
  Receive Date: 20200526
  Receipt Date: 20200602
  Transmission Date: 20200714
  Serious: No
  Sender: FDA-Public Use
  Company Number: US-TEVA-2020-US-1240302

PATIENT
  Sex: Female

DRUGS (1)
  1. SYNRIBO [Suspect]
     Active Substance: OMACETAXINE MEPESUCCINATE
     Indication: CHRONIC MYELOID LEUKAEMIA
     Dosage: (2.5MG/0.71ML) SUBQ, BID FOR 14 DAYS OF 28 DAY CYCLE.
     Route: 058
     Dates: start: 20200513

REACTIONS (4)
  - Asthenia [Unknown]
  - Injection site pain [Unknown]
  - Pain [Unknown]
  - Decreased appetite [Unknown]
